FAERS Safety Report 11886887 (Version 2)
Quarter: 2016Q2

REPORT INFORMATION
  Report Type: Report from Study
  Country: CA (occurrence: CA)
  Receive Date: 20160104
  Receipt Date: 20160629
  Transmission Date: 20160815
  Serious: Yes (Hospitalization, Other)
  Sender: FDA-Public Use
  Company Number: CA-ABBVIE-16P-028-1531094-00

PATIENT
  Age: 69 Year
  Sex: Male

DRUGS (1)
  1. LUPRON DEPOT [Suspect]
     Active Substance: LEUPROLIDE ACETATE
     Indication: PROSTATE CANCER
     Route: 030
     Dates: start: 20130709

REACTIONS (6)
  - Upper limb fracture [Recovering/Resolving]
  - Fall [Recovering/Resolving]
  - Prostate cancer metastatic [Not Recovered/Not Resolved]
  - Fall [Recovered/Resolved]
  - Urinary retention [Unknown]
  - Urinary tract obstruction [Unknown]

NARRATIVE: CASE EVENT DATE: 201512
